FAERS Safety Report 13939949 (Version 1)
Quarter: 2017Q3

REPORT INFORMATION
  Report Type: Spontaneous
  Country: RU (occurrence: RU)
  Receive Date: 20170906
  Receipt Date: 20170906
  Transmission Date: 20171127
  Serious: Yes (Other)
  Sender: FDA-Public Use
  Company Number: RU-ASTRAZENECA-2017SE90240

PATIENT
  Age: 69 Year
  Sex: Female
  Weight: 56 kg

DRUGS (8)
  1. MEXIDOL [Concomitant]
  2. CRESTOR [Suspect]
     Active Substance: ROSUVASTATIN CALCIUM
     Indication: ARTERIOSCLEROSIS
     Dosage: 10.0MG UNKNOWN
     Route: 048
     Dates: start: 201706, end: 20170822
  3. BRILINTA [Suspect]
     Active Substance: TICAGRELOR
     Indication: STENT PLACEMENT
     Route: 048
     Dates: start: 20170620
  4. PRESTARIUM [Concomitant]
     Active Substance: PERINDOPRIL
  5. OMEZ [Concomitant]
     Active Substance: OMEPRAZOLE
  6. THROMBO ASS [Concomitant]
     Active Substance: ASPIRIN
  7. CRESTOR [Suspect]
     Active Substance: ROSUVASTATIN CALCIUM
     Indication: ARTERIOSCLEROSIS
     Dosage: 5.0MG UNKNOWN
     Route: 048
     Dates: start: 20170822
  8. BRILINTA [Suspect]
     Active Substance: TICAGRELOR
     Indication: ANGINA UNSTABLE
     Route: 048
     Dates: start: 20170620

REACTIONS (4)
  - Hyperproteinaemia [Not Recovered/Not Resolved]
  - Shunt thrombosis [Not Recovered/Not Resolved]
  - Blood creatinine increased [Not Recovered/Not Resolved]
  - Contusion [Not Recovered/Not Resolved]

NARRATIVE: CASE EVENT DATE: 201706
